FAERS Safety Report 20862493 (Version 1)
Quarter: 2022Q2

REPORT INFORMATION
  Report Type: Spontaneous
  Country: US (occurrence: None)
  Receive Date: 20220523
  Receipt Date: 20220523
  Transmission Date: 20220721
  Serious: Yes (Hospitalization)
  Sender: FDA-Public Use
  Company Number: None

PATIENT
  Age: 50 Year
  Sex: Female
  Weight: 71 kg

DRUGS (1)
  1. PRAZOSIN [Suspect]
     Active Substance: PRAZOSIN
     Indication: Nightmare
     Dosage: 4 MG AT BEDTIME PO?
     Route: 048
     Dates: start: 20190614

REACTIONS (2)
  - Suicide attempt [None]
  - Overdose [None]

NARRATIVE: CASE EVENT DATE: 20220502
